FAERS Safety Report 14583604 (Version 1)
Quarter: 2018Q1

REPORT INFORMATION
  Report Type: Spontaneous
  Country: FR (occurrence: FR)
  Receive Date: 20180228
  Receipt Date: 20180228
  Transmission Date: 20180509
  Serious: Yes (Life-Threatening, Hospitalization)
  Sender: FDA-Public Use
  Company Number: FR-PFIZER INC-2018077823

PATIENT
  Age: 70 Year
  Sex: Male
  Weight: 74 kg

DRUGS (3)
  1. ATORVASTATIN CALCIUM. [Suspect]
     Active Substance: ATORVASTATIN CALCIUM
     Dosage: 40 MG, 1X/DAY
     Route: 048
     Dates: end: 20180102
  2. COLCHICINE. [Interacting]
     Active Substance: COLCHICINE
     Dosage: 2 MG, 1X/DAY
     Route: 048
     Dates: start: 20171101, end: 20180102
  3. CLARITHROMYCINE [Interacting]
     Active Substance: CLARITHROMYCIN
     Dosage: 1000 MG, 1X/DAY
     Route: 048
     Dates: start: 20171214, end: 20180102

REACTIONS (4)
  - Drug interaction [Recovering/Resolving]
  - Rhabdomyolysis [Recovering/Resolving]
  - Hepatocellular injury [Recovering/Resolving]
  - Pancytopenia [Recovered/Resolved]

NARRATIVE: CASE EVENT DATE: 20180102
